FAERS Safety Report 16428221 (Version 6)
Quarter: 2019Q3

REPORT INFORMATION
  Report Type: Spontaneous
  Country: FR (occurrence: FR)
  Receive Date: 20190613
  Receipt Date: 20190930
  Transmission Date: 20191004
  Serious: Yes (Hospitalization, Other)
  Sender: FDA-Public Use
  Company Number: FR-PFIZER INC-2019247510

PATIENT
  Age: 57 Year
  Sex: Female

DRUGS (27)
  1. PANTOPRAZOLE [Suspect]
     Active Substance: PANTOPRAZOLE
     Indication: PROPHYLAXIS AGAINST GASTROINTESTINAL ULCER
     Dosage: 2 GIGABECQUEREL, QD
     Route: 048
     Dates: end: 20140213
  2. OLANZAPINE PFIZER [Suspect]
     Active Substance: OLANZAPINE
     Indication: HYPERTENSION
     Dosage: UNK
     Route: 048
     Dates: start: 20131107, end: 20140213
  3. ACTONEL [Suspect]
     Active Substance: RISEDRONATE SODIUM
     Indication: MENTAL DISORDER
  4. DITROPAN [Suspect]
     Active Substance: OXYBUTYNIN CHLORIDE
     Indication: URINARY INCONTINENCE
     Dosage: 5 MILLIGRAM, QD
     Route: 048
     Dates: end: 20140213
  5. SULFARLEM [Suspect]
     Active Substance: ANETHOLTRITHION
     Indication: LUNG INFECTION
  6. DIFFU K [Suspect]
     Active Substance: POTASSIUM CHLORIDE
     Indication: HYPOKALAEMIA
     Dosage: 1 DOSE FORM, ONCE DAILY
     Route: 048
  7. RISPERDALORO [Suspect]
     Active Substance: RISPERIDONE
     Indication: MENTAL DISORDER
     Dosage: 1 MILLIGRAM, QD
     Route: 048
     Dates: start: 20131003, end: 20140213
  8. RISPERDAL [Suspect]
     Active Substance: RISPERIDONE
     Indication: MENTAL DISORDER
     Dosage: 1 MILLIGRAM, QD
     Route: 048
     Dates: start: 20131003, end: 20140213
  9. RISPERDAL [Suspect]
     Active Substance: RISPERIDONE
     Indication: RHEUMATOID ARTHRITIS
  10. ACTONEL [Suspect]
     Active Substance: RISEDRONATE SODIUM
     Indication: OSTEOPOROSIS
     Dosage: 35 MILLIGRAM, QD
     Route: 048
     Dates: end: 20140213
  11. SERETIDE [Suspect]
     Active Substance: FLUTICASONE PROPIONATE\SALMETEROL XINAFOATE
     Indication: CHRONIC OBSTRUCTIVE PULMONARY DISEASE
     Dosage: 1 DOSE FORM, TWICE DAILY
     Route: 055
     Dates: end: 20140213
  12. ZINNAT [CEFUROXIME AXETIL] [Suspect]
     Active Substance: CEFUROXIME
     Indication: PAIN
  13. COVERAM [Suspect]
     Active Substance: AMLODIPINE\PERINDOPRIL
     Indication: HYPERTENSION
     Dosage: 5
     Route: 048
     Dates: end: 20140210
  14. DITROPAN [Suspect]
     Active Substance: OXYBUTYNIN CHLORIDE
     Indication: CHRONIC OBSTRUCTIVE PULMONARY DISEASE
  15. SERETIDE [Suspect]
     Active Substance: FLUTICASONE PROPIONATE\SALMETEROL XINAFOATE
     Indication: MENTAL DISORDER
  16. SPECIAFOLDINE [Concomitant]
     Active Substance: FOLIC ACID
     Dosage: UNK
  17. SERTRALINE HCL [Suspect]
     Active Substance: SERTRALINE HYDROCHLORIDE
     Indication: MENTAL DISORDER
     Dosage: UNK
     Route: 048
     Dates: start: 201308, end: 201310
  18. COVERAM [Suspect]
     Active Substance: AMLODIPINE\PERINDOPRIL
     Indication: URINARY INCONTINENCE
  19. IXPRIM [Suspect]
     Active Substance: ACETAMINOPHEN\TRAMADOL HYDROCHLORIDE
     Indication: PAIN
     Dosage: 1 GIGABECQUEREL, BID
     Route: 048
     Dates: end: 20140213
  20. PANTOPRAZOLE [Suspect]
     Active Substance: PANTOPRAZOLE
     Indication: HYPOKALAEMIA
  21. RISPERDALORO [Suspect]
     Active Substance: RISPERIDONE
     Indication: RHEUMATOID ARTHRITIS
  22. ZINNAT [CEFUROXIME AXETIL] [Suspect]
     Active Substance: CEFUROXIME
     Indication: LUNG INFECTION
     Dosage: UNK
     Route: 048
     Dates: start: 20140210, end: 20140212
  23. EFFERALGAN [Suspect]
     Active Substance: ACETAMINOPHEN
     Indication: PAIN
     Dosage: 1 MILLIGRAM, TID
     Route: 048
     Dates: end: 20140213
  24. SULFARLEM [Suspect]
     Active Substance: ANETHOLTRITHION
     Indication: CHRONIC OBSTRUCTIVE PULMONARY DISEASE
     Dosage: 1 DOSE FORM, THREE TIMES DAILY
     Route: 048
     Dates: end: 20140213
  25. SERTRALINE HCL [Suspect]
     Active Substance: SERTRALINE HYDROCHLORIDE
     Indication: CHRONIC OBSTRUCTIVE PULMONARY DISEASE
     Dosage: UNK
     Route: 048
     Dates: start: 20131107, end: 20140213
  26. METOJECT [Suspect]
     Active Substance: METHOTREXATE SODIUM
     Indication: RHEUMATOID ARTHRITIS
     Dosage: 1 DF, WEEKLY
     Route: 030
     Dates: end: 201310
  27. METOJECT [Suspect]
     Active Substance: METHOTREXATE SODIUM
     Indication: OSTEOPOROSIS
     Dosage: UNK UNK, 1/WEEK
     Route: 030
     Dates: start: 20131215, end: 20140213

REACTIONS (6)
  - Hepatitis [Recovering/Resolving]
  - Cytomegalovirus hepatitis [Unknown]
  - Asthenia [Unknown]
  - Frequent bowel movements [Unknown]
  - Breath sounds abnormal [Unknown]
  - Depression [Unknown]

NARRATIVE: CASE EVENT DATE: 20140212
